FAERS Safety Report 5573857-9 (Version None)
Quarter: 2007Q4

REPORT INFORMATION
  Report Type: 
  Country: None (occurrence: None)
  Receive Date: 20071226
  Receipt Date: 20071220
  Transmission Date: 20080405
  Serious: Yes (Other)
  Sender: FDA-Public Use
  Company Number: CH-ASTRAZENECA-2007AC02498

PATIENT
  Age: 26 Year
  Sex: Female

DRUGS (7)
  1. ZOLMITRIPTAN [Suspect]
     Indication: MIGRAINE
     Dosage: TAKEN 3 TO 4 TIMES PER MONTH.
     Dates: start: 20050901, end: 20060101
  2. ZOLMITRIPTAN [Suspect]
     Dosage: 10 PILLS PER WEEK.
     Dates: start: 20060201, end: 20060301
  3. TACROLIMUS [Suspect]
     Indication: PROPHYLAXIS AGAINST TRANSPLANT REJECTION
     Dates: start: 20010101
  4. TACROLIMUS [Suspect]
     Dosage: 1 MG IN THE MORNING AND 0.5 MG IN THE EVENING.
     Dates: start: 20060301
  5. MYCOPHENOLATE MOFETIL [Concomitant]
     Indication: PROPHYLAXIS AGAINST TRANSPLANT REJECTION
     Dates: start: 20010101
  6. ORAL CONTRACEPTIVE (ESTRADIOL + PROGESTERONE) [Concomitant]
  7. MAGNESIUM [Concomitant]

REACTIONS (1)
  - RENAL INJURY [None]
